FAERS Safety Report 9695680 (Version 4)
Quarter: 2013Q4

REPORT INFORMATION
  Report Type: Spontaneous
  Country: US (occurrence: US)
  Receive Date: 20131119
  Receipt Date: 20131219
  Transmission Date: 20140711
  Serious: No
  Sender: FDA-Public Use
  Company Number: US-VERTEX PHARMACEUTICALS INC-2013-011077

PATIENT
  Age: 52 Year
  Sex: Female
  Weight: 58 kg

DRUGS (9)
  1. INCIVEK [Suspect]
     Indication: HEPATITIS C
     Dosage: 2 DF, TID
     Route: 048
     Dates: start: 201310
  2. PEGASYS [Suspect]
     Indication: HEPATITIS C
     Dosage: 180 ?G, QW
     Route: 058
     Dates: start: 201310
  3. COPEGUS [Suspect]
     Indication: HEPATITIS C
     Dosage: 1 DF, BID
     Route: 048
     Dates: start: 201310
  4. COPEGUS [Suspect]
     Dosage: 3 TABS IN AM AND 2 TABS
     Route: 048
  5. B12 [Concomitant]
     Dosage: UNK, QD
  6. IRON [Concomitant]
     Dosage: UNK, QD
  7. VITAMIN D [Concomitant]
     Dosage: UNK, QD
  8. VITAMIN C [Concomitant]
     Dosage: UNK, QD
  9. MULTIVITAMIN [Concomitant]
     Dosage: UNK, QD

REACTIONS (8)
  - Incorrect drug administration duration [Not Recovered/Not Resolved]
  - Expired drug administered [Not Recovered/Not Resolved]
  - Influenza like illness [Unknown]
  - Decreased appetite [Not Recovered/Not Resolved]
  - Sinus disorder [Not Recovered/Not Resolved]
  - Weight decreased [Not Recovered/Not Resolved]
  - Asthenia [Not Recovered/Not Resolved]
  - Fatigue [Unknown]
